FAERS Safety Report 4808453-1 (Version None)
Quarter: 2005Q4

REPORT INFORMATION
  Report Type: 
  Country: None (occurrence: None)
  Receive Date: 20051021
  Receipt Date: 20021213
  Transmission Date: 20060501
  Serious: No
  Sender: FDA-Public Use
  Company Number: JP_021200298

PATIENT
  Age: 36 Year
  Sex: Female

DRUGS (5)
  1. ZYPREXA [Suspect]
     Indication: SCHIZOPHRENIA
     Dosage: 5 MG/DAY
     Dates: end: 20021218
  2. ARTANE [Concomitant]
  3. AMOBAN (ZOPICLONE) [Concomitant]
  4. ESTAZOLAM [Concomitant]
  5. DEPAS (ETIZOLAM) [Concomitant]

REACTIONS (6)
  - DYSKINESIA [None]
  - DYSPHONIA [None]
  - INSOMNIA [None]
  - MENSTRUATION IRREGULAR [None]
  - POLLAKIURIA [None]
  - THIRST [None]
